FAERS Safety Report 6966498-X (Version None)
Quarter: 2010Q3

REPORT INFORMATION
  Report Type: 
  Country: None (occurrence: None)
  Receive Date: 20100906
  Receipt Date: 20100830
  Transmission Date: 20110219
  Serious: Yes (Hospitalization, Other)
  Sender: FDA-Public Use
  Company Number: US-BIOGENIDEC-2010BI002660

PATIENT
  Age: 57 Year
  Sex: Female

DRUGS (2)
  1. AVONEX [Suspect]
     Indication: MULTIPLE SCLEROSIS
     Route: 030
     Dates: start: 20031210, end: 20050809
  2. AVONEX [Suspect]
     Route: 030
     Dates: start: 20070820, end: 20100101

REACTIONS (2)
  - BRAIN NEOPLASM [None]
  - CONVULSION [None]
